FAERS Safety Report 11529445 (Version 2)
Quarter: 2015Q3

REPORT INFORMATION
  Report Type: Spontaneous
  Country: US (occurrence: US)
  Receive Date: 20150921
  Receipt Date: 20150928
  Transmission Date: 20151125
  Serious: No
  Sender: FDA-Public Use
  Company Number: US-HORIZON-ACT-0157-2015

PATIENT
  Age: 2 Year
  Sex: Male

DRUGS (1)
  1. ACTIMMUNE [Suspect]
     Active Substance: INTERFERON GAMMA-1B
     Indication: IMMUNODEFICIENCY
     Dosage: 27 ?G 3 TIMES PER WEEK
     Route: 058
     Dates: start: 20150818

REACTIONS (1)
  - Pyrexia [Unknown]
